FAERS Safety Report 22757138 (Version 2)
Quarter: 2025Q3

REPORT INFORMATION
  Report Type: Report from Study
  Country: US (occurrence: US)
  Receive Date: 20230727
  Receipt Date: 20250831
  Transmission Date: 20251020
  Serious: No
  Sender: NOVARTIS
  Company Number: US-002147023-NVSC2023US161817

PATIENT
  Sex: Female
  Weight: 95.25 kg

DRUGS (6)
  1. COSENTYX [Suspect]
     Active Substance: SECUKINUMAB
     Indication: Psoriasis
     Route: 065
  2. TRIAMCINOLONE [Suspect]
     Active Substance: TRIAMCINOLONE
     Indication: Psoriasis
     Route: 065
  3. FUROSEMIDE [Suspect]
     Active Substance: FUROSEMIDE
     Indication: Psoriasis
     Route: 065
  4. LOSARTAN [Suspect]
     Active Substance: LOSARTAN
     Indication: Psoriasis
     Route: 065
  5. SERTRALINE [Suspect]
     Active Substance: SERTRALINE HYDROCHLORIDE
     Indication: Psoriasis
     Route: 065
  6. PROPRANOLOL [Suspect]
     Active Substance: PROPRANOLOL HYDROCHLORIDE
     Indication: Psoriasis
     Route: 065

REACTIONS (9)
  - Chills [Unknown]
  - Skin exfoliation [Unknown]
  - Papule [Unknown]
  - Arthralgia [Unknown]
  - Depression [Unknown]
  - Pruritus [Unknown]
  - Rash [Unknown]
  - Drug ineffective [Unknown]
  - Product use in unapproved indication [Unknown]
